FAERS Safety Report 20842829 (Version 1)
Quarter: 2022Q2

REPORT INFORMATION
  Report Type: Other
  Country: CN (occurrence: None)
  Receive Date: 20220518
  Receipt Date: 20220518
  Transmission Date: 20220721
  Serious: Yes (Other)
  Sender: FDA-Public Use
  Company Number: CN-ROCHE-3095293

PATIENT

DRUGS (3)
  1. BEVACIZUMAB [Suspect]
     Active Substance: BEVACIZUMAB
     Indication: Non-small cell lung cancer
     Dosage: DAY1, 21 DAYS AS A COURSE OF TREATMENT, ONCE IN EACH COURSE. SPECIFICATION 400MG(16ML)/VIAL, INJECTO
     Route: 041
  2. PACLITAXEL [Suspect]
     Active Substance: PACLITAXEL
     Indication: Non-small cell lung cancer
     Dosage: DAY1, 21 DAYS AS A COURSE OF TREATMENT, ONCE IN EACH COURSE. SPECIFICATION: 5 ML: 30 MG.
     Route: 041
  3. CARBOPLATIN [Suspect]
     Active Substance: CARBOPLATIN
     Indication: Non-small cell lung cancer
     Dosage: 300-400 MG/M2 IN DAY2, 21 DAYS AS A COURSE OF TREATMENT, ONCE IN EACH COURSE. SPECIFICATION: 100 MG.
     Route: 041

REACTIONS (1)
  - Myelosuppression [Unknown]
